FAERS Safety Report 5679703-7 (Version None)
Quarter: 2008Q1

REPORT INFORMATION
  Report Type: 
  Country: None (occurrence: None)
  Receive Date: 20080321
  Receipt Date: 20080310
  Transmission Date: 20080703
  Serious: Yes (Death)
  Sender: FDA-Public Use
  Company Number: CAR-2008-012

PATIENT
  Age: 68 Year
  Sex: Female

DRUGS (14)
  1. SUCRALFATE [Suspect]
     Indication: GASTRIC ULCER
     Dosage: I DOSAGE FORMS BID; 4 DOSAGE FORMS QID PO
     Route: 048
     Dates: start: 20030224
  2. IBUPROFEN [Suspect]
     Indication: PAIN
     Dosage: 1DOSAGE FORMS, PRN PO
     Route: 048
     Dates: start: 20030214
  3. DICLOFENAC SODIUM [Suspect]
     Indication: PAIN
     Dosage: 1X U PO
     Route: 048
     Dates: start: 20030203
  4. ALDACTONE [Suspect]
     Indication: ASCITES
     Dosage: 50 MG, BID; 50 MG, TID; 50 MG, BID PO
     Route: 048
     Dates: start: 20030223, end: 20030408
  5. DIPYRONE TAB [Suspect]
     Indication: PAIN
     Dosage: 1 U, PRN PO
     Route: 048
     Dates: start: 20030214
  6. OBSIDAN (PROPRANOLOL HYDROCHLORIDE) [Suspect]
     Indication: PORTAL HYPERTENSION
     Dosage: 0.5 DOSAGE FORMS, TID PO
     Route: 048
  7. AQUAPHOR (XIPAMIDE) [Suspect]
     Indication: OEDEMA
     Dosage: 20 MG TABLETS, QD PO
     Route: 048
     Dates: start: 20030304
  8. HEPA-MERZ (ORNITHINE ASPARTATE) [Suspect]
     Indication: HEPATIC CIRRHOSIS
     Dosage: 1 DOSAGE FORMS SYRUP, TID; 1 DOSAGE FORMS, TID PO
     Route: 048
     Dates: start: 20030222
  9. METOCLOPRAMIDE [Suspect]
     Indication: REFLUX OESOPHAGITIS
     Dosage: 36 DOSAGE FORMS GTT, TID PO
     Route: 048
     Dates: start: 20030222
  10. NEXIUM [Suspect]
     Indication: HELICOBACTER INFECTION
     Dosage: 20 MG, PRN PO
     Route: 048
     Dates: start: 20030225
  11. KONAKION [Suspect]
     Indication: VITAMIN K DEFICIENCY
     Dosage: 10 DOSAGE FORMS GTT, TID PO
     Route: 048
     Dates: start: 20030222
  12. CALCILAC KT (COLECALCIFEROL, CALCIUM CARBONATE) [Suspect]
     Indication: OSTEOPOROSIS
     Dosage: 1 U BID; 1 U, QD PO
     Route: 048
     Dates: start: 20030222
  13. MILGAMME (BENFOTIAMIN + PYRIDOXIN) [Suspect]
     Indication: VITAMIN A
     Dosage: 1 DOSAGE FORMS TID PO
     Route: 048
     Dates: start: 20030222
  14. OMEPRAZOLE [Suspect]
     Indication: GASTRITIS PROPHYLAXIS
     Dosage: 20 MG TABLETS, BID PO
     Route: 048
     Dates: start: 20030319, end: 20030408

REACTIONS (1)
  - STEVENS-JOHNSON SYNDROME [None]
